FAERS Safety Report 14313931 (Version 2)
Quarter: 2018Q1

REPORT INFORMATION
  Report Type: Spontaneous
  Country: US (occurrence: US)
  Receive Date: 20171221
  Receipt Date: 20180103
  Transmission Date: 20180509
  Serious: Yes (Hospitalization)
  Sender: FDA-Public Use
  Company Number: US-TARO-2017TAR01071

PATIENT
  Age: 47 Year
  Sex: Female

DRUGS (2)
  1. ACETAZOLAMIDE TABLETS 250 MG [Suspect]
     Active Substance: ACETAZOLAMIDE
     Indication: SEIZURE
     Dosage: 250 MG, 2X/DAY
     Route: 048
     Dates: end: 201610
  2. MEBARAL [Suspect]
     Active Substance: MEPHOBARBITAL
     Indication: SEIZURE

REACTIONS (5)
  - Screaming [Recovering/Resolving]
  - Drug level increased [Recovered/Resolved]
  - Personality change [Recovering/Resolving]
  - Tooth abscess [Recovered/Resolved]
  - Decreased appetite [Recovering/Resolving]

NARRATIVE: CASE EVENT DATE: 201610
